FAERS Safety Report 10377377 (Version 1)
Quarter: 2014Q3

REPORT INFORMATION
  Report Type: Spontaneous
  Country: IN (occurrence: IN)
  Receive Date: 20140812
  Receipt Date: 20140812
  Transmission Date: 20150326
  Serious: Yes (Life-Threatening, Hospitalization)
  Sender: FDA-Public Use
  Company Number: PHHY2014IN097033

PATIENT
  Age: 11 Year
  Sex: Female

DRUGS (1)
  1. PARACETAMOL [Suspect]
     Active Substance: ACETAMINOPHEN
     Indication: PYREXIA
     Dosage: 3 DF, UNK

REACTIONS (27)
  - Toxic epidermal necrolysis [Recovering/Resolving]
  - Scar [Unknown]
  - Skin hyperpigmentation [Unknown]
  - Hypokalaemia [Unknown]
  - Mucosal erosion [Unknown]
  - Lip haemorrhage [Unknown]
  - Stevens-Johnson syndrome [Recovering/Resolving]
  - Lip erosion [Unknown]
  - Skin plaque [Unknown]
  - Blood bicarbonate decreased [Unknown]
  - Nikolsky^s sign [Unknown]
  - Oral mucosa erosion [Unknown]
  - Scab [Recovering/Resolving]
  - Blister [Unknown]
  - Eyelid bleeding [Unknown]
  - Epidermal necrosis [Unknown]
  - Dysphagia [Unknown]
  - Eating disorder [Recovering/Resolving]
  - Eye irritation [Unknown]
  - Lethargy [Unknown]
  - Oedema [Unknown]
  - Pyrexia [Recovering/Resolving]
  - Lip oedema [Unknown]
  - Conjunctivitis [Unknown]
  - Skin exfoliation [Unknown]
  - Apoptosis [Unknown]
  - Rash generalised [Recovering/Resolving]
